FAERS Safety Report 9325865 (Version 2)
Quarter: 2013Q2

REPORT INFORMATION
  Report Type: Spontaneous
  Country: US (occurrence: US)
  Receive Date: 20130604
  Receipt Date: 20130611
  Transmission Date: 20140414
  Serious: Yes (Death, Other)
  Sender: FDA-Public Use
  Company Number: US-PFIZER INC-2013167184

PATIENT
  Sex: Male

DRUGS (1)
  1. XELJANZ [Suspect]
     Dosage: UNK

REACTIONS (4)
  - Death [Fatal]
  - Demyelination [Unknown]
  - Mental status changes [Unknown]
  - Disturbance in attention [Unknown]
